FAERS Safety Report 9186136 (Version 2)
Quarter: 2013Q1

REPORT INFORMATION
  Report Type: Spontaneous
  Country: DE (occurrence: DE)
  Receive Date: 20130325
  Receipt Date: 20130327
  Transmission Date: 20140127
  Serious: Yes (Other)
  Sender: FDA-Public Use
  Company Number: DE-ASTRAZENECA-2013SE17366

PATIENT
  Age: 27641 Day
  Sex: Female

DRUGS (3)
  1. FASLODEX [Suspect]
     Route: 030
     Dates: start: 20130129
  2. ZOMETA [Concomitant]
     Indication: BREAST CANCER METASTATIC
     Dates: start: 201202
  3. LETROZOL [Concomitant]
     Dates: start: 201202, end: 201302

REACTIONS (1)
  - Diabetes mellitus [Unknown]
